FAERS Safety Report 11309821 (Version 1)
Quarter: 2015Q3

REPORT INFORMATION
  Report Type: Spontaneous
  Country: IN (occurrence: IN)
  Receive Date: 20150724
  Receipt Date: 20150724
  Transmission Date: 20151125
  Serious: Yes (Death)
  Sender: FDA-Public Use
  Company Number: IN-BAXTER-2015BAX039603

PATIENT
  Age: 30 Year
  Sex: Female

DRUGS (3)
  1. DIAZEPAM. [Concomitant]
     Active Substance: DIAZEPAM
     Indication: HYPERAMMONAEMIC ENCEPHALOPATHY
     Route: 042
  2. DEXTROSE INJECTION 5% IP [Suspect]
     Active Substance: DEXTROSE
     Indication: OFF LABEL USE
  3. DEXTROSE INJECTION 5% IP [Suspect]
     Active Substance: DEXTROSE
     Indication: HYPERAMMONAEMIC ENCEPHALOPATHY
     Route: 042

REACTIONS (4)
  - Hyperammonaemic encephalopathy [Fatal]
  - Condition aggravated [Fatal]
  - Toxic encephalopathy [Fatal]
  - Toxic encephalopathy [None]
